FAERS Safety Report 12058601 (Version 1)
Quarter: 2016Q1

REPORT INFORMATION
  Report Type: Spontaneous
  Country: US (occurrence: None)
  Receive Date: 20160209
  Receipt Date: 20160209
  Transmission Date: 20160526
  Serious: No
  Sender: FDA-Public Use
  Company Number: None

PATIENT
  Age: 66 Year

DRUGS (2)
  1. TOPIRAMATE. [Suspect]
     Active Substance: TOPIRAMATE
     Indication: MIGRAINE
     Route: 048
     Dates: start: 20110125, end: 20110221
  2. TOPIRAMATE. [Suspect]
     Active Substance: TOPIRAMATE
     Indication: DIZZINESS
     Route: 048
     Dates: start: 20110125, end: 20110221

REACTIONS (2)
  - Eye pain [None]
  - Intraocular pressure increased [None]

NARRATIVE: CASE EVENT DATE: 20110128
